FAERS Safety Report 7080383-7 (Version None)
Quarter: 2010Q4

REPORT INFORMATION
  Report Type: 
  Country: None (occurrence: None)
  Receive Date: 20101025
  Receipt Date: 20101020
  Transmission Date: 20110411
  Serious: Yes (Life-Threatening, Hospitalization, Disabling, Other)
  Sender: FDA-Public Use
  Company Number: TRP_07302_2010

PATIENT
  Sex: Male
  Weight: 80.7403 kg

DRUGS (2)
  1. INFERGEN [Suspect]
     Indication: HEPATITIS C
     Dosage: (15 UG QD SUBCUTANEOUS)
     Route: 058
     Dates: start: 20100827, end: 20100921
  2. RIBAVIRIN [Suspect]
     Indication: HEPATITIS C
     Dosage: (600 UG BID ORAL)
     Route: 048
     Dates: end: 20100921

REACTIONS (2)
  - APLASTIC ANAEMIA [None]
  - IDIOPATHIC THROMBOCYTOPENIC PURPURA [None]
